FAERS Safety Report 19967262 (Version 1)
Quarter: 2021Q4

REPORT INFORMATION
  Report Type: Spontaneous
  Country: NL (occurrence: NL)
  Receive Date: 20211019
  Receipt Date: 20211019
  Transmission Date: 20220303
  Serious: Yes (Other)
  Sender: FDA-Public Use
  Company Number: NL-AMGEN-NLDSL2021058685

PATIENT
  Age: 73 Year
  Sex: Female

DRUGS (14)
  1. LETROZOLE [Suspect]
     Active Substance: LETROZOLE
     Indication: Product used for unknown indication
     Dosage: 2.5 MILLIGRAM, ONCE A DAY
     Route: 065
  2. XGEVA [Suspect]
     Active Substance: DENOSUMAB
     Indication: Prophylaxis
     Dosage: 120 MILLIGRAM (4 TIMES A WEEK) (120 MILLIGRAM/1.7ML, Q4WK)
     Route: 058
  3. XGEVA [Suspect]
     Active Substance: DENOSUMAB
     Indication: Product used for unknown indication
     Dosage: 120 MILLIGRAM (4 TIMES A WEEK) (120 MILLIGRAM/1.7ML, Q4WK)
     Route: 058
  4. XGEVA [Suspect]
     Active Substance: DENOSUMAB
     Dosage: 120 MILLIGRAM (4 TIMES A WEEK) (120 MILLIGRAM/1.7ML, Q4WK)
     Route: 058
     Dates: start: 20210316
  5. SELENIUM SULFIDE [Concomitant]
     Active Substance: SELENIUM SULFIDE
     Indication: Product used for unknown indication
     Dosage: 25 MILLIGRAM PER MILLILITRE
     Route: 065
  6. CALCIUM CARBONATE\CHOLECALCIFEROL [Concomitant]
     Active Substance: CALCIUM CARBONATE\CHOLECALCIFEROL
     Indication: Product used for unknown indication
     Dosage: 1.25 GRAM, ONCE A DAY(1.25 GRAM / 800IE (500MG CA), QD)
     Route: 065
  7. PANTOPRAZOLE [Concomitant]
     Active Substance: PANTOPRAZOLE
     Indication: Product used for unknown indication
     Dosage: 40 MILLIGRAM, ONCE A DAY(40 MILLIGRAM, QD)
     Route: 065
  8. IBRANCE [Concomitant]
     Active Substance: PALBOCICLIB
     Indication: Product used for unknown indication
     Dosage: 125 MILLIGRAM, ONCE A DAY(125 MILLIGRAM, QD)
     Route: 065
  9. POLYETHYLENE GLYCOLS [Concomitant]
     Active Substance: POLYETHYLENE GLYCOLS
     Indication: Product used for unknown indication
     Dosage: UNK(1-2D1SA)
     Route: 065
  10. FASLODEX [Concomitant]
     Active Substance: FULVESTRANT
     Indication: Product used for unknown indication
     Dosage: 50 MILLIGRAM PER MILLILITRE(50 MILLIGRAM PER MILLILITRE, 2INJ/4WK)
     Route: 065
  11. HYPROMELLOSES [Concomitant]
     Active Substance: HYPROMELLOSES
     Indication: Product used for unknown indication
     Dosage: 3 MILLIGRAM PER MILLILITRE(3 MILLIGRAM PER MILLILITRE, FL 10ML, 3D1DR)
     Route: 065
  12. HYPROMELLOSES [Concomitant]
     Active Substance: HYPROMELLOSES
     Dosage: 3.2 MILLIGRAM PER MILLILITRE(3.2 MILLIGRAM PER MILLILITRE,FL 10ML 3XD 1 DROP )
     Route: 065
  13. IBUPROFEN [Concomitant]
     Active Substance: IBUPROFEN
     Indication: Product used for unknown indication
     Dosage: 200 MILLIGRAM(200 MILLIGRAM, WHEN NEEDED 3XD 1T)
     Route: 065
  14. IBUPROFEN [Concomitant]
     Active Substance: IBUPROFEN
     Dosage: 200 MILLIGRAM(200 MILLIGRAM, 3D1T)
     Route: 065

REACTIONS (7)
  - Flank pain [Recovering/Resolving]
  - Spinal pain [Not Recovered/Not Resolved]
  - Musculoskeletal stiffness [Not Recovered/Not Resolved]
  - Peripheral swelling [Not Recovered/Not Resolved]
  - Chronic lymphocytic leukaemia [Not Recovered/Not Resolved]
  - Pleural effusion [Recovered/Resolved]
  - Arthralgia [Unknown]

NARRATIVE: CASE EVENT DATE: 20210101
